FAERS Safety Report 24185112 (Version 1)
Quarter: 2024Q3

REPORT INFORMATION
  Report Type: Spontaneous
  Country: GB (occurrence: GB)
  Receive Date: 20240807
  Receipt Date: 20240807
  Transmission Date: 20241017
  Serious: Yes (Disabling, Other)
  Sender: BAYER
  Company Number: None

PATIENT
  Age: 54 Year
  Sex: Female
  Weight: 53 kg

DRUGS (3)
  1. CIPROFLOXACIN HYDROCHLORIDE [Suspect]
     Active Substance: CIPROFLOXACIN HYDROCHLORIDE
     Indication: Peritonitis
     Dosage: 500 MG
     Route: 048
     Dates: start: 20210405, end: 20220527
  2. CIPROFLOXACIN HYDROCHLORIDE [Suspect]
     Active Substance: CIPROFLOXACIN HYDROCHLORIDE
     Indication: Liver injury
  3. CIPROFLOXACIN HYDROCHLORIDE [Suspect]
     Active Substance: CIPROFLOXACIN HYDROCHLORIDE
     Indication: Alcoholic liver disease

REACTIONS (11)
  - Product monitoring error [Unknown]
  - Neck pain [Not Recovered/Not Resolved]
  - Tinnitus [Not Recovered/Not Resolved]
  - Depression [Not Recovered/Not Resolved]
  - Arthralgia [Not Recovered/Not Resolved]
  - Back pain [Unknown]
  - Pain in extremity [Unknown]
  - Anxiety [Unknown]
  - Paranoia [Unknown]
  - Aortic aneurysm [Unknown]
  - Arthritis [Unknown]

NARRATIVE: CASE EVENT DATE: 20210520
